FAERS Safety Report 6578563-X (Version None)
Quarter: 2010Q1

REPORT INFORMATION
  Report Type: 
  Country: None (occurrence: None)
  Receive Date: 20100211
  Receipt Date: 20100208
  Transmission Date: 20100710
  Serious: Yes (Death, Hospitalization)
  Sender: FDA-Public Use
  Company Number: US-GILEAD-2010-0026348

PATIENT
  Sex: Female

DRUGS (14)
  1. LETAIRIS [Suspect]
     Indication: PULMONARY ARTERIAL HYPERTENSION
     Route: 048
     Dates: start: 20090508
  2. COUMADIN [Concomitant]
  3. SIMVASTATIN [Concomitant]
  4. TOPROL-XL [Concomitant]
  5. BUMEX [Concomitant]
  6. ASPIRIN [Concomitant]
  7. SEREVENT DIS [Concomitant]
  8. FLOVENT HFA [Concomitant]
  9. AVANDIA [Concomitant]
  10. METFORMIN HCL [Concomitant]
  11. LEVOTHYROXINE SODIUM [Concomitant]
  12. FERROUS SULFATE TAB [Concomitant]
  13. LOVAZA [Concomitant]
  14. TYLENOL-500 [Concomitant]

REACTIONS (9)
  - BLOOD PRESSURE INCREASED [None]
  - CARDIAC ARREST [None]
  - DIFFUSE ALVEOLAR DAMAGE [None]
  - MULTI-ORGAN FAILURE [None]
  - NOSOCOMIAL INFECTION [None]
  - PNEUMONIA [None]
  - PNEUMONIA LEGIONELLA [None]
  - RESPIRATORY FAILURE [None]
  - SEPTIC SHOCK [None]
